FAERS Safety Report 9364719 (Version 1)
Quarter: 2013Q2

REPORT INFORMATION
  Report Type: Other
  Country: GB (occurrence: GB)
  Receive Date: 20130624
  Receipt Date: 20130624
  Transmission Date: 20140414
  Serious: Yes (Death, Other)
  Sender: FDA-Public Use
  Company Number: GB-ACTAVIS-2013-11205

PATIENT
  Age: 17 Year
  Sex: Male

DRUGS (3)
  1. PARACETAMOL (UNKNOWN) [Suspect]
     Indication: PRODUCT USED FOR UNKNOWN INDICATION
     Dosage: OVERDOSE WITH 2 TABLETS
     Route: 065
  2. ISOTRETINOIN [Suspect]
     Indication: ACNE
     Dosage: 80 MG, DAILY
     Route: 065
     Dates: start: 201005
  3. CHLORPHENAMINE [Suspect]
     Indication: PRODUCT USED FOR UNKNOWN INDICATION
     Dosage: OVERDOE WITH 21 TABLETS
     Route: 065

REACTIONS (15)
  - Completed suicide [Fatal]
  - Suicidal ideation [Fatal]
  - Suicide attempt [Fatal]
  - Personality change [Fatal]
  - Dry skin [Fatal]
  - Lip dry [Fatal]
  - Scar [Fatal]
  - Erythema [Fatal]
  - Oropharyngeal pain [Fatal]
  - Localised infection [Fatal]
  - Ingrowing nail [Fatal]
  - Pain in extremity [Fatal]
  - Erythema [Fatal]
  - Gastric infection [Fatal]
  - Overdose [Fatal]
